FAERS Safety Report 25250220 (Version 1)
Quarter: 2025Q2

REPORT INFORMATION
  Report Type: Spontaneous
  Country: ES (occurrence: ES)
  Receive Date: 20250429
  Receipt Date: 20250429
  Transmission Date: 20250717
  Serious: Yes (Hospitalization, Other)
  Sender: AUROBINDO
  Company Number: ES-AEMPS-1661921

PATIENT
  Age: 61 Year
  Sex: Male

DRUGS (2)
  1. MEROPENEM [Suspect]
     Active Substance: MEROPENEM
     Indication: Bacterial pyelonephritis
     Dosage: 1 GRAM, 3 TIMES A DAY
     Route: 042
     Dates: start: 20250304, end: 20250305
  2. CEFTRIAXONE [Suspect]
     Active Substance: CEFTRIAXONE
     Indication: Bacterial pyelonephritis
     Dosage: 1 GRAM, ONCE A DAY
     Route: 042
     Dates: start: 20250305, end: 20250307

REACTIONS (1)
  - Pancytopenia [Recovered/Resolved]

NARRATIVE: CASE EVENT DATE: 20250307
